FAERS Safety Report 8158700-6 (Version None)
Quarter: 2012Q1

REPORT INFORMATION
  Report Type: 
  Country: None (occurrence: None)
  Receive Date: 20120217
  Receipt Date: 20120210
  Transmission Date: 20120608
  Serious: Yes (Death)
  Sender: FDA-Public Use
  Company Number: 2012SP008134

PATIENT
  Age: 64 Year
  Sex: Male

DRUGS (1)
  1. TEMODAL [Suspect]
     Indication: METASTATIC MALIGNANT MELANOMA
     Dosage: 245 MG; ;PO
     Route: 048
     Dates: start: 20111017, end: 20120207

REACTIONS (1)
  - DEATH [None]
